FAERS Safety Report 20484899 (Version 5)
Quarter: 2024Q2

REPORT INFORMATION
  Report Type: Spontaneous
  Country: US (occurrence: US)
  Receive Date: 20220217
  Receipt Date: 20240527
  Transmission Date: 20240716
  Serious: Yes (Hospitalization, Disabling, Other)
  Sender: FDA-Public Use
  Company Number: US-SA-SAC20220214000186

PATIENT
  Age: 48 Year
  Sex: Female

DRUGS (1)
  1. AUBAGIO [Suspect]
     Active Substance: TERIFLUNOMIDE
     Indication: Multiple sclerosis
     Dosage: 14 MG, QD
     Route: 048
     Dates: start: 201801

REACTIONS (17)
  - Gait inability [Unknown]
  - Hyperthyroidism [Unknown]
  - Depression [Unknown]
  - Multiple sclerosis relapse [Unknown]
  - Tremor [Unknown]
  - Bowel movement irregularity [Unknown]
  - Bladder disorder [Unknown]
  - Memory impairment [Unknown]
  - Aphasia [Unknown]
  - Depressed mood [Unknown]
  - Balance disorder [Unknown]
  - Disturbance in attention [Unknown]
  - Pain in extremity [Unknown]
  - Paraesthesia [Unknown]
  - Hypoaesthesia [Unknown]
  - Drug ineffective [Unknown]
  - Back pain [Unknown]

NARRATIVE: CASE EVENT DATE: 20220101
